FAERS Safety Report 11156002 (Version 1)
Quarter: 2015Q2

REPORT INFORMATION
  Report Type: Spontaneous
  Country: US (occurrence: None)
  Receive Date: 20150601
  Receipt Date: 20150601
  Transmission Date: 20150821
  Serious: Yes (Death, Hospitalization)
  Sender: FDA-Public Use
  Company Number: None

PATIENT
  Age: 46 Year
  Sex: Female
  Weight: 99.79 kg

DRUGS (6)
  1. C-PAP DEVICE [Concomitant]
  2. VYVANSE [Suspect]
     Active Substance: LISDEXAMFETAMINE DIMESYLATE
     Indication: FATIGUE
     Route: 048
     Dates: start: 20141014, end: 20141120
  3. VYVANSE [Suspect]
     Active Substance: LISDEXAMFETAMINE DIMESYLATE
     Indication: SLEEP APNOEA SYNDROME
     Route: 048
     Dates: start: 20141014, end: 20141120
  4. VYVANASE [Concomitant]
  5. CALCIUM W/VIT D [Concomitant]
  6. MULTIVITAMIN [Concomitant]
     Active Substance: VITAMINS

REACTIONS (4)
  - Unresponsive to stimuli [None]
  - Unevaluable event [None]
  - Syncope [None]
  - Dyspnoea [None]

NARRATIVE: CASE EVENT DATE: 20141201
